FAERS Safety Report 6224449-X (Version None)
Quarter: 2009Q2

REPORT INFORMATION
  Report Type: 
  Country: None (occurrence: None)
  Receive Date: 20090612
  Receipt Date: 20090331
  Transmission Date: 20091009
  Serious: No
  Sender: FDA-Public Use
  Company Number: US-ABBOTT-09P-163-0563658-00

PATIENT
  Sex: Female
  Weight: 68.1 kg

DRUGS (3)
  1. HUMIRA [Suspect]
     Indication: PSORIATIC ARTHROPATHY
     Route: 058
     Dates: start: 20071001, end: 20080401
  2. MOTRIN [Concomitant]
     Indication: PSORIATIC ARTHROPATHY
  3. VITAMIN TAB [Concomitant]
     Indication: PREGNANCY
     Route: 048

REACTIONS (1)
  - PSORIATIC ARTHROPATHY [None]
